FAERS Safety Report 6866976-8 (Version None)
Quarter: 2010Q3

REPORT INFORMATION
  Report Type: 
  Country: None (occurrence: None)
  Receive Date: 20100722
  Receipt Date: 20100715
  Transmission Date: 20110219
  Serious: Yes (Death, Life-Threatening, Other)
  Sender: FDA-Public Use
  Company Number: DE-ROCHE-707855

PATIENT
  Sex: Female
  Weight: 48 kg

DRUGS (2)
  1. HERCEPTIN [Suspect]
     Route: 042
     Dates: start: 20090211, end: 20091113
  2. TAXOTERE [Suspect]
     Route: 042
     Dates: start: 20090925, end: 20091204

REACTIONS (3)
  - ASCITES [None]
  - DEATH [None]
  - MALIGNANT NEOPLASM PROGRESSION [None]
